FAERS Safety Report 5587729-7 (Version None)
Quarter: 2007Q4

REPORT INFORMATION
  Report Type: 
  Country: None (occurrence: None)
  Receive Date: 20071210
  Receipt Date: 20070314
  Transmission Date: 20080405
  Serious: Yes (Other)
  Sender: FDA-Public Use
  Company Number: SPV1-2007-0385

PATIENT
  Age: 6 Year
  Sex: Male
  Weight: 22 kg

DRUGS (1)
  1. ADDERALL 10 [Suspect]
     Dosage: 10 MG, 1X/DAY; QD, ORAL
     Route: 048
     Dates: start: 20070306, end: 20070313

REACTIONS (3)
  - ANXIETY [None]
  - OBSESSIVE-COMPULSIVE DISORDER [None]
  - TACHYCARDIA [None]
